APPROVED DRUG PRODUCT: FINTEPLA
Active Ingredient: FENFLURAMINE HYDROCHLORIDE
Strength: EQ 2.2MG BASE/ML
Dosage Form/Route: SOLUTION;ORAL
Application: N212102 | Product #001
Applicant: UCB INC
Approved: Jun 25, 2020 | RLD: Yes | RS: Yes | Type: RX

PATENTS:
Patent 9603815 | Expires: May 3, 2033
Patent 9549909 | Expires: May 3, 2033
Patent 10452815 | Expires: Jun 29, 2038
Patent 9610260 | Expires: May 3, 2033
Patent 9603814 | Expires: May 3, 2033
Patent 10603290 | Expires: Aug 2, 2037
Patent 10478442 | Expires: May 3, 2033
Patent 10478441 | Expires: May 3, 2033
Patent 12097206 | Expires: May 3, 2033
Patent 11759440 | Expires: Aug 2, 2037
Patent 11040018 | Expires: Aug 2, 2037
Patent 11406606 | Expires: Aug 2, 2037
Patent 11406606 | Expires: Aug 2, 2037
Patent 11786487 | Expires: Aug 2, 2037
Patent 10603290 | Expires: Aug 2, 2037
Patent 11040018 | Expires: Aug 2, 2037
Patent 10947183 | Expires: Dec 20, 2036
Patent 11759440*PED | Expires: Feb 2, 2038
Patent 11406606*PED | Expires: Feb 2, 2038
Patent 9603815*PED | Expires: Nov 3, 2033
Patent 9549909*PED | Expires: Nov 3, 2033
Patent 10452815*PED | Expires: Dec 29, 2038
Patent 9610260*PED | Expires: Nov 3, 2033
Patent 9603814*PED | Expires: Nov 3, 2033
Patent 10603290*PED | Expires: Feb 2, 2038
Patent 10478442*PED | Expires: Nov 3, 2033
Patent 10478441*PED | Expires: Nov 3, 2033
Patent 11040018*PED | Expires: Feb 2, 2038
Patent 12097206*PED | Expires: Nov 3, 2033
Patent 11786487*PED | Expires: Feb 2, 2038
Patent 10947183*PED | Expires: Jun 20, 2037

EXCLUSIVITY:
Code: ODE-312 | Date: Jun 25, 2027
Code: ODE-393 | Date: Mar 25, 2029
Code: PED | Date: Dec 25, 2027
Code: PED | Date: Sep 25, 2029